FAERS Safety Report 25824902 (Version 1)
Quarter: 2025Q3

REPORT INFORMATION
  Report Type: Spontaneous
  Country: US (occurrence: None)
  Receive Date: 20250919
  Receipt Date: 20250919
  Transmission Date: 20251020
  Serious: No
  Sender: FDA-CTU
  Company Number: None

PATIENT
  Age: 76 Year
  Sex: Female

DRUGS (6)
  1. CAPECITABINE [Suspect]
     Active Substance: CAPECITABINE
     Indication: Breast cancer female
     Dosage: 2000 MG BID ORAL
     Route: 048
     Dates: start: 20250515, end: 20250919
  2. amlodipine 5mg tabs [Concomitant]
  3. atorvastatin 10mg tabs [Concomitant]
  4. hydrochlorothiazide 12.5mg caps [Concomitant]
  5. ibuprofen 200mg tabs [Concomitant]
  6. METFORMIN HYDROCHLORIDE [Concomitant]
     Active Substance: METFORMIN HYDROCHLORIDE

REACTIONS (3)
  - Nausea [None]
  - Lip discolouration [None]
  - Therapy cessation [None]

NARRATIVE: CASE EVENT DATE: 20250806
